FAERS Safety Report 9530770 (Version 1)
Quarter: 2013Q1

REPORT INFORMATION
  Report Type: Spontaneous
  Country: US (occurrence: None)
  Receive Date: 20130318
  Receipt Date: 20130318
  Transmission Date: 20140127
  Serious: Yes (Hospitalization, Other)
  Sender: FDA-Public Use
  Company Number: 163-21660-12123335

PATIENT
  Sex: Female

DRUGS (4)
  1. ABRAXANE [Suspect]
     Indication: BREAST CANCER
     Dosage: 1 IN 1 WK
     Route: 042
  2. AVASTIN (BEVACIZUMAB) [Concomitant]
  3. CARBOPLATIN (CARBOPLATIN) [Concomitant]
  4. G-CSF (GRANULOCYTE COLONY STIMULATING FACTOR) [Concomitant]

REACTIONS (3)
  - Liver function test abnormal [None]
  - Nausea [None]
  - Vomiting [None]
